FAERS Safety Report 19047499 (Version 7)
Quarter: 2021Q3

REPORT INFORMATION
  Report Type: Report from Study
  Country: CL (occurrence: CL)
  Receive Date: 20210323
  Receipt Date: 20210809
  Transmission Date: 20211014
  Serious: Yes (Hospitalization, Other)
  Sender: FDA-Public Use
  Company Number: NVSC2021CL065010

PATIENT
  Age: 63 Year
  Sex: Female

DRUGS (2)
  1. LOSARTAN. [Concomitant]
     Active Substance: LOSARTAN
     Indication: BLOOD PRESSURE MEASUREMENT
     Dosage: UNK
     Route: 065
  2. KISQALI [Suspect]
     Active Substance: RIBOCICLIB
     Indication: BREAST CANCER
     Dosage: 600 MG, QD
     Route: 048
     Dates: start: 20191206

REACTIONS (11)
  - Breast cancer [Unknown]
  - Illness [Unknown]
  - Gene mutation [Unknown]
  - Syncope [Unknown]
  - Ill-defined disorder [Unknown]
  - Hepatic lesion [Unknown]
  - Constipation [Unknown]
  - Liver injury [Unknown]
  - Drug ineffective [Unknown]
  - Pain [Recovered/Resolved]
  - Malignant neoplasm progression [Unknown]

NARRATIVE: CASE EVENT DATE: 20210513
